FAERS Safety Report 23504772 (Version 1)
Quarter: 2024Q1

REPORT INFORMATION
  Report Type: Spontaneous
  Country: US (occurrence: None)
  Receive Date: 20240208
  Receipt Date: 20240208
  Transmission Date: 20240409
  Serious: Yes (Other)
  Sender: FDA-Public Use
  Company Number: None

PATIENT
  Age: 67 Year
  Sex: 0

DRUGS (1)
  1. LEVOFLOXACIN [Suspect]
     Active Substance: LEVOFLOXACIN

REACTIONS (7)
  - Insomnia [None]
  - Tendonitis [None]
  - Arthralgia [None]
  - Myalgia [None]
  - Fatigue [None]
  - Abdominal discomfort [None]
  - Psychotic disorder [None]

NARRATIVE: CASE EVENT DATE: 20230320
